FAERS Safety Report 4818183-8 (Version None)
Quarter: 2005Q4

REPORT INFORMATION
  Report Type: 
  Country: None (occurrence: None)
  Receive Date: 20051101
  Receipt Date: 20051101
  Transmission Date: 20060501
  Serious: No
  Sender: FDA-Public Use
  Company Number: None

PATIENT
  Sex: Male
  Weight: 9.0719 kg

DRUGS (13)
  1. NPH INSULIN [Suspect]
     Indication: DIABETES MELLITUS
     Dosage: 45 UNITS BID
     Dates: start: 20050802, end: 20050909
  2. NPH INSULIN [Suspect]
     Indication: DIABETES MELLITUS
     Dosage: 45 UNITS BID
     Dates: start: 20050819, end: 20050909
  3. METFORMIN [Suspect]
     Indication: DIABETES MELLITUS
     Dosage: 1000 MG BID
     Dates: start: 20041223, end: 20050909
  4. CLOPIDOGREL BISULFATE [Concomitant]
  5. METOPROLOL TARTRATE [Concomitant]
  6. SIMVASTATIN [Concomitant]
  7. FUROSEMIDE [Concomitant]
  8. LISINOPRIL [Concomitant]
  9. CLOTRIMAZOLE [Concomitant]
  10. RANITIDINE HCL [Concomitant]
  11. INSULIN REG HUMAN 100 U/ML INJ NOVOLIN R [Concomitant]
  12. METFORMIN HCL [Concomitant]
  13. POTASSIUM CHLORIDE [Concomitant]

REACTIONS (1)
  - HYPOGLYCAEMIA [None]
